FAERS Safety Report 7324480-7 (Version None)
Quarter: 2011Q1

REPORT INFORMATION
  Report Type: 
  Country: None (occurrence: None)
  Receive Date: 20110203
  Receipt Date: 20100923
  Transmission Date: 20110831
  Serious: Yes (Life-Threatening)
  Sender: FDA-Public Use
  Company Number: 018392

PATIENT
  Sex: Male

DRUGS (8)
  1. DIPHENHYDRAMINE HYDROCHLORIDE [Concomitant]
  2. GLUCOSAMINE [Concomitant]
  3. HYDROCODONE [Concomitant]
  4. KEPPRA [Suspect]
  5. VOTRIENT [Suspect]
     Indication: RENAL CELL CARCINOMA
     Dosage: (ORAL)
     Route: 048
     Dates: start: 20100101
  6. LORAZEPAM [Concomitant]
  7. LOTRISONE [Concomitant]
  8. NAPROXEN SODIUM [Concomitant]

REACTIONS (1)
  - RASH [None]
